FAERS Safety Report 9103232 (Version 1)
Quarter: 2013Q1

REPORT INFORMATION
  Report Type: Spontaneous
  Country: IT (occurrence: IT)
  Receive Date: 20130219
  Receipt Date: 20130219
  Transmission Date: 20140127
  Serious: Yes (Hospitalization)
  Sender: FDA-Public Use
  Company Number: IT-BRISTOL-MYERS SQUIBB COMPANY-17372665

PATIENT
  Age: 80 Year
  Sex: Female

DRUGS (8)
  1. COUMADIN TABS 5 MG [Suspect]
     Indication: THROMBOSIS PROPHYLAXIS
     Dosage: 1DF=1 UNIT
     Route: 048
     Dates: start: 20121201, end: 20121215
  2. CARDIOASPIRIN [Suspect]
     Indication: THROMBOSIS PROPHYLAXIS
     Dosage: 100 MG TABLETS
     Route: 048
     Dates: start: 20120101, end: 20121215
  3. PLAVIX [Suspect]
     Route: 048
  4. QUARK [Concomitant]
     Dosage: TABS
  5. NORVASC [Concomitant]
     Dosage: TABS
     Route: 048
  6. TORVAST [Concomitant]
     Route: 048
  7. TORVAST [Concomitant]
     Dosage: TABS
     Route: 048
  8. LASIX [Concomitant]
     Dosage: ORAL
     Route: 048

REACTIONS (2)
  - Epistaxis [Recovered/Resolved]
  - Asthenia [Recovered/Resolved]
